FAERS Safety Report 5568128-0 (Version None)
Quarter: 2007Q4

REPORT INFORMATION
  Report Type: 
  Country: None (occurrence: None)
  Receive Date: 20071220
  Receipt Date: 20071207
  Transmission Date: 20080405
  Serious: Yes (Other)
  Sender: FDA-Public Use
  Company Number: US-BAYER-200713603BCC

PATIENT
  Age: 45 Year
  Sex: Female
  Weight: 47 kg

DRUGS (1)
  1. ALKA-SELTZER PLUS COLD EFFERVESCENT TABLETS [Suspect]
     Indication: NASOPHARYNGITIS
     Dosage: TOTAL DAILY DOSE: 500 MG  UNIT DOSE: 250 MG
     Route: 048
     Dates: start: 20071105

REACTIONS (6)
  - FALL [None]
  - HEADACHE [None]
  - LOSS OF CONSCIOUSNESS [None]
  - MOBILITY DECREASED [None]
  - PERFORMANCE STATUS DECREASED [None]
  - VOMITING [None]
